FAERS Safety Report 18418791 (Version 1)
Quarter: 2020Q4

REPORT INFORMATION
  Report Type: Spontaneous
  Country: DK (occurrence: DK)
  Receive Date: 20201023
  Receipt Date: 20201023
  Transmission Date: 20210114
  Serious: Yes (Hospitalization)
  Sender: FDA-Public Use
  Company Number: DK-BIOGEN-2020BI00938359

PATIENT
  Age: 53 Year
  Sex: Male

DRUGS (4)
  1. RAMIPRIL ^KRKA^ [Concomitant]
     Indication: HYPERTENSION
     Dosage: STRENGTH: 2.5MG
     Route: 048
     Dates: start: 20171009
  2. CLOPIDOGREL ^MYLAN^ [Concomitant]
     Indication: THROMBOSIS PROPHYLAXIS
     Dosage: STRENGTH: 75MG
     Route: 048
     Dates: start: 20130715
  3. COSOPT UKONSERVERET [Concomitant]
     Indication: GLAUCOMA
     Dosage: DOSAGE: 1 GTT IN EACH EYE?STRENGTH: 20+5MG/ML
     Route: 050
     Dates: start: 20150901
  4. TECFIDERA [Suspect]
     Active Substance: DIMETHYL FUMARATE
     Indication: MULTIPLE SCLEROSIS
     Dosage: STRENGTH: 240MG
     Route: 048
     Dates: start: 201902

REACTIONS (1)
  - Appendicitis [Recovered/Resolved]

NARRATIVE: CASE EVENT DATE: 202006
